FAERS Safety Report 4354814-7 (Version None)
Quarter: 2004Q2

REPORT INFORMATION
  Report Type: 
  Country: None (occurrence: None)
  Receive Date: 20040507
  Receipt Date: 20030721
  Transmission Date: 20050107
  Serious: Yes (Hospitalization)
  Sender: FDA-Public Use
  Company Number: DE-ROCHE-342703

PATIENT
  Age: 67 Year
  Sex: Female
  Weight: 76 kg

DRUGS (3)
  1. XENICAL [Suspect]
     Indication: OBESITY
     Route: 048
     Dates: start: 20030509, end: 20030705
  2. ASPIRIN [Concomitant]
     Dates: start: 19860615
  3. REMIFEMIN [Concomitant]
     Dates: start: 20030215, end: 20030710

REACTIONS (5)
  - HEPATIC NECROSIS [None]
  - HEPATITIS [None]
  - HEPATITIS B SURFACE ANTIGEN POSITIVE [None]
  - LIPASE INCREASED [None]
  - PANCREATIC DISORDER [None]
